FAERS Safety Report 15888031 (Version 2)
Quarter: 2019Q1

REPORT INFORMATION
  Report Type: Spontaneous
  Country: DE (occurrence: DE)
  Receive Date: 20190130
  Receipt Date: 20190211
  Transmission Date: 20190417
  Serious: Yes (Hospitalization)
  Sender: FDA-Public Use
  Company Number: DE-ACCORD-103903

PATIENT
  Age: 54 Year
  Sex: Male

DRUGS (8)
  1. FORMOTEROL [Concomitant]
     Active Substance: FORMOTEROL
     Dosage: 12 UG, 1-0-1-0
  2. ASPIRIN. [Concomitant]
     Active Substance: ASPIRIN
     Dosage: 100 MG, 0-1-0-1
  3. ATORVASTATIN [Concomitant]
     Active Substance: ATORVASTATIN
     Dosage: 40 MG, 0-0-1-0
  4. METOPROLOL. [Suspect]
     Active Substance: METOPROLOL
     Indication: PRODUCT USED FOR UNKNOWN INDICATION
     Dosage: 50 MG, 1-0-1-0
  5. PANTOPRAZOLE [Concomitant]
     Active Substance: PANTOPRAZOLE
     Dosage: 40 MG, 0-0-0-1
  6. RAMIPRIL. [Suspect]
     Active Substance: RAMIPRIL
     Indication: PRODUCT USED FOR UNKNOWN INDICATION
     Dosage: 2.5 MG, 1-0-1-0
  7. TIOTROPIUM [Concomitant]
     Active Substance: TIOTROPIUM
     Dosage: 18 UG, 1-0-0-0
  8. EPLERENONE. [Suspect]
     Active Substance: EPLERENONE
     Indication: PRODUCT USED FOR UNKNOWN INDICATION
     Dosage: 25 MG, 1-0-0-0

REACTIONS (2)
  - Syncope [Unknown]
  - Fall [Unknown]
